FAERS Safety Report 9641980 (Version 2)
Quarter: 2014Q1

REPORT INFORMATION
  Report Type: Spontaneous
  Country: GB (occurrence: None)
  Receive Date: 20131022
  Receipt Date: 20140218
  Transmission Date: 20141002
  Serious: Yes (Hospitalization)
  Sender: FDA-Public Use
  Company Number: FK201304664

PATIENT
  Age: 60 Year
  Sex: Female

DRUGS (3)
  1. LETROZOLE [Suspect]
     Indication: BREAST CANCER
     Route: 048
     Dates: start: 20110921, end: 20130920
  2. AMLODIPINE (AMLODIPINE) [Concomitant]
  3. RAMIPRIL (RAMIPRIL) [Concomitant]

REACTIONS (11)
  - B-lymphocyte count decreased [None]
  - CD4 lymphocytes decreased [None]
  - Confusional state [None]
  - Blood immunoglobulin A decreased [None]
  - Blood immunoglobulin M decreased [None]
  - Lymphopenia [None]
  - Pneumonia [None]
  - Herpes virus infection [None]
  - Herpes zoster [None]
  - Staphylococcal bacteraemia [None]
  - Pneumonia herpes viral [None]
